FAERS Safety Report 24891773 (Version 13)
Quarter: 2025Q4

REPORT INFORMATION
  Report Type: Report from Study
  Country: EU (occurrence: EU)
  Receive Date: 20250127
  Receipt Date: 20251209
  Transmission Date: 20260117
  Serious: Yes (Death, Life-Threatening, Hospitalization)
  Sender: JOHNSON AND JOHNSON
  Company Number: EU-JNJFOC-20250163950

PATIENT
  Age: 74 Year
  Sex: Female
  Weight: 78 kg

DRUGS (17)
  1. CILTACABTAGENE AUTOLEUCEL [Suspect]
     Active Substance: CILTACABTAGENE AUTOLEUCEL
     Indication: Plasma cell myeloma
     Dosage: 0.7 X10^6 CAR-POSITIVE VIABLE T CELLS/KG
     Route: 042
     Dates: start: 20241125, end: 20241125
  2. METAMIZOLE [Concomitant]
     Active Substance: METAMIZOLE
     Indication: Pain
     Route: 048
     Dates: start: 20241118
  3. LEVOTHYROXINE SODIUM [Concomitant]
     Active Substance: LEVOTHYROXINE SODIUM
     Indication: Hypothyroidism
     Route: 048
     Dates: start: 20241118
  4. HYGROTON [Concomitant]
     Active Substance: CHLORTHALIDONE
     Indication: Hypertension
     Route: 048
     Dates: start: 20241118
  5. ASPIRIN [Concomitant]
     Active Substance: ASPIRIN
     Indication: Prophylaxis
     Route: 048
     Dates: start: 2024
  6. ACYCLOVIR [Concomitant]
     Active Substance: ACYCLOVIR
     Indication: Infection prophylaxis
     Route: 048
     Dates: start: 20241118
  7. NALOXONE HYDROCHLORIDE\TILIDINE HYDROCHLORIDE [Concomitant]
     Active Substance: NALOXONE HYDROCHLORIDE\TILIDINE HYDROCHLORIDE
     Indication: Pain
     Dosage: 50/4 MG
     Route: 048
     Dates: start: 20241118
  8. MAGNO SANOL [Concomitant]
     Indication: Magnesium deficiency
     Dosage: 50/4 MG
     Route: 048
     Dates: start: 20241125
  9. FRESUBIN [Concomitant]
     Active Substance: AMINO ACIDS\DEXTROSE\ELECTROLYTES NOS\SOYBEAN OIL\VITAMINS
     Indication: Nutritional supplementation
     Dosage: 50/4 MG
     Route: 048
     Dates: start: 20241125
  10. FRESUBIN [Concomitant]
     Active Substance: AMINO ACIDS\DEXTROSE\ELECTROLYTES NOS\SOYBEAN OIL\VITAMINS
     Route: 048
     Dates: start: 20241128, end: 20241210
  11. SOLIFENACIN [Concomitant]
     Active Substance: SOLIFENACIN
     Indication: Pollakiuria
     Route: 048
     Dates: start: 20241118
  12. FREEFLEX [CALCIUM PHOSPHATE DIBASIC;CHONDROITIN SULFATE;GLUCOSAMINE SU [Concomitant]
     Indication: Fluid replacement
     Route: 042
     Dates: start: 20241129, end: 20241201
  13. FREEFLEX [CALCIUM PHOSPHATE DIBASIC;CHONDROITIN SULFATE;GLUCOSAMINE SU [Concomitant]
     Route: 042
     Dates: start: 20241125, end: 20241126
  14. ACYCLOVIR [Concomitant]
     Active Substance: ACYCLOVIR
     Indication: Infection prophylaxis
     Route: 048
     Dates: start: 20241106
  15. ACYCLOVIR [Concomitant]
     Active Substance: ACYCLOVIR
     Route: 048
  16. ENOXAPARIN SODIUM [Concomitant]
     Active Substance: ENOXAPARIN SODIUM
     Indication: Prophylaxis
     Route: 058
     Dates: start: 20241118
  17. SULFAMETHOXAZOLE\TRIMETHOPRIM [Concomitant]
     Active Substance: SULFAMETHOXAZOLE\TRIMETHOPRIM
     Indication: Infection prophylaxis
     Route: 048
     Dates: start: 20241106

REACTIONS (9)
  - Pulmonary embolism [Fatal]
  - Infection [Not Recovered/Not Resolved]
  - Device related infection [Recovered/Resolved]
  - Facial paralysis [Not Recovered/Not Resolved]
  - Pyrexia [Recovered/Resolved]
  - Decreased appetite [Not Recovered/Not Resolved]
  - Diarrhoea [Not Recovered/Not Resolved]
  - Dyspnoea [Not Recovered/Not Resolved]
  - Cough [Not Recovered/Not Resolved]

NARRATIVE: CASE EVENT DATE: 20241125
